FAERS Safety Report 7449361-X (Version None)
Quarter: 2011Q2

REPORT INFORMATION
  Report Type: 
  Country: None (occurrence: None)
  Receive Date: 20110502
  Receipt Date: 20110422
  Transmission Date: 20111010
  Serious: No
  Sender: FDA-Public Use
  Company Number: US-BIOGENIDEC-2011BI015488

PATIENT
  Age: 53 Year
  Sex: Female

DRUGS (2)
  1. TOPAMAX [Concomitant]
     Indication: NEURALGIA
  2. TYSABRI [Suspect]
     Indication: MULTIPLE SCLEROSIS
     Route: 042
     Dates: start: 20090723

REACTIONS (5)
  - FATIGUE [None]
  - WEIGHT INCREASED [None]
  - MULTIPLE SCLEROSIS RELAPSE [None]
  - VOMITING [None]
  - PAIN IN EXTREMITY [None]
